FAERS Safety Report 14528959 (Version 1)
Quarter: 2018Q1

REPORT INFORMATION
  Report Type: Spontaneous
  Country: GB (occurrence: GB)
  Receive Date: 20180214
  Receipt Date: 20180214
  Transmission Date: 20180509
  Serious: Yes (Hospitalization)
  Sender: FDA-Public Use
  Company Number: GB-CONCORDIA PHARMACEUTICALS INC.-E2B_00009865

PATIENT
  Age: 78 Year
  Sex: Female

DRUGS (7)
  1. RIVAROXABAN [Concomitant]
     Active Substance: RIVAROXABAN
  2. DOMPERIDONE [Concomitant]
     Active Substance: DOMPERIDONE
  3. COCODAMOL [Concomitant]
     Active Substance: ACETAMINOPHEN\CODEINE PHOSPHATE
  4. DIGOXIN. [Suspect]
     Active Substance: DIGOXIN
     Indication: ATRIAL FIBRILLATION
     Route: 048
     Dates: start: 201711, end: 201801
  5. ATENOLOL. [Concomitant]
     Active Substance: ATENOLOL
  6. ESOMEPRAZOLE [Concomitant]
     Active Substance: ESOMEPRAZOLE
  7. BUMETANIDE. [Concomitant]
     Active Substance: BUMETANIDE

REACTIONS (4)
  - Decreased appetite [Recovering/Resolving]
  - Nausea [Recovering/Resolving]
  - Malaise [Recovering/Resolving]
  - Toxicity to various agents [Recovered/Resolved]

NARRATIVE: CASE EVENT DATE: 201711
